FAERS Safety Report 16565861 (Version 3)
Quarter: 2020Q4

REPORT INFORMATION
  Report Type: Spontaneous
  Country: CA (occurrence: CA)
  Receive Date: 20190712
  Receipt Date: 20201116
  Transmission Date: 20210113
  Serious: Yes (Other)
  Sender: FDA-Public Use
  Company Number: CA-TEVA-2019-CA-1074572

PATIENT
  Sex: Male

DRUGS (79)
  1. PANTOPRAZOLE [Suspect]
     Active Substance: PANTOPRAZOLE
     Indication: PRODUCT USED FOR UNKNOWN INDICATION
     Dosage: 40 MILLIGRAM DAILY;
     Route: 048
  2. PANTOPRAZOLE [Suspect]
     Active Substance: PANTOPRAZOLE
     Route: 065
  3. PANTOPRAZOLE [Suspect]
     Active Substance: PANTOPRAZOLE
     Route: 065
  4. PANTOPRAZOLE [Suspect]
     Active Substance: PANTOPRAZOLE
     Route: 065
  5. FOLIC ACID. [Suspect]
     Active Substance: FOLIC ACID
     Indication: PRODUCT USED FOR UNKNOWN INDICATION
     Dosage: 1 MILLIGRAM DAILY;
     Route: 048
  6. IMURAN [Suspect]
     Active Substance: AZATHIOPRINE
     Route: 042
  7. IMURAN [Suspect]
     Active Substance: AZATHIOPRINE
     Route: 042
  8. LASIX [Suspect]
     Active Substance: FUROSEMIDE
     Route: 065
  9. LASIX [Suspect]
     Active Substance: FUROSEMIDE
     Route: 042
  10. ULTIBRO BREEZHALER [Suspect]
     Active Substance: GLYCOPYRRONIUM\INDACATEROL
     Route: 042
  11. VITAMIN E NOS [Suspect]
     Active Substance: .ALPHA.-TOCOPHEROL
     Route: 042
  12. WARFARIN [Suspect]
     Active Substance: WARFARIN
     Route: 065
  13. WARFARIN [Suspect]
     Active Substance: WARFARIN
     Route: 042
  14. ARANESP [Suspect]
     Active Substance: DARBEPOETIN ALFA
     Indication: ANAEMIA
     Route: 058
  15. FOLIC ACID. [Suspect]
     Active Substance: FOLIC ACID
     Route: 042
  16. FOLIC ACID. [Suspect]
     Active Substance: FOLIC ACID
     Route: 042
  17. LASIX [Suspect]
     Active Substance: FUROSEMIDE
     Route: 065
  18. LASIX [Suspect]
     Active Substance: FUROSEMIDE
     Route: 042
  19. LASIX [Suspect]
     Active Substance: FUROSEMIDE
     Route: 042
  20. ULTIBRO BREEZHALER [Suspect]
     Active Substance: GLYCOPYRRONIUM\INDACATEROL
     Route: 042
  21. WARFARIN [Suspect]
     Active Substance: WARFARIN
     Route: 042
  22. PANTOPRAZOLE [Suspect]
     Active Substance: PANTOPRAZOLE
     Route: 042
  23. PANTOPRAZOLE [Suspect]
     Active Substance: PANTOPRAZOLE
     Route: 065
  24. FOLIC ACID. [Suspect]
     Active Substance: FOLIC ACID
     Route: 065
  25. HYDROMORPH CONTIN [Suspect]
     Active Substance: HYDROMORPHONE
     Indication: PAIN
     Dosage: 30 MILLIGRAM DAILY;
     Route: 048
  26. LASIX [Suspect]
     Active Substance: FUROSEMIDE
     Indication: PRODUCT USED FOR UNKNOWN INDICATION
     Dosage: 1500 MILLIGRAM DAILY;
     Route: 048
  27. LASIX [Suspect]
     Active Substance: FUROSEMIDE
     Route: 065
  28. ULTIBRO BREEZHALER [Suspect]
     Active Substance: GLYCOPYRRONIUM\INDACATEROL
     Route: 042
  29. VITAMIN E NOS [Suspect]
     Active Substance: .ALPHA.-TOCOPHEROL
     Route: 065
  30. AZATHIOPRINE. [Suspect]
     Active Substance: AZATHIOPRINE
     Route: 042
  31. AZATHIOPRINE. [Suspect]
     Active Substance: AZATHIOPRINE
     Route: 065
  32. METOPROLOL. [Suspect]
     Active Substance: METOPROLOL
     Indication: BLOOD PRESSURE ABNORMAL
     Dosage: 50 MILLIGRAM DAILY;
     Route: 048
  33. FOLIC ACID. [Suspect]
     Active Substance: FOLIC ACID
     Route: 065
  34. FOLIC ACID. [Suspect]
     Active Substance: FOLIC ACID
     Route: 065
  35. IMURAN [Suspect]
     Active Substance: AZATHIOPRINE
     Route: 065
  36. IMURAN [Suspect]
     Active Substance: AZATHIOPRINE
     Route: 042
  37. ULTIBRO BREEZHALER [Suspect]
     Active Substance: GLYCOPYRRONIUM\INDACATEROL
     Route: 042
  38. ULTIBRO BREEZHALER [Suspect]
     Active Substance: GLYCOPYRRONIUM\INDACATEROL
     Route: 042
  39. VITAMIN E NOS [Suspect]
     Active Substance: .ALPHA.-TOCOPHEROL
     Indication: PRODUCT USED FOR UNKNOWN INDICATION
     Dosage: 400 IU (INTERNATIONAL UNIT) DAILY;
     Route: 048
  40. VITAMIN E NOS [Suspect]
     Active Substance: .ALPHA.-TOCOPHEROL
     Route: 065
  41. WARFARIN [Suspect]
     Active Substance: WARFARIN
     Route: 065
  42. AZATHIOPRINE. [Suspect]
     Active Substance: AZATHIOPRINE
     Route: 042
  43. ULTIBRO BREEZHALER [Suspect]
     Active Substance: GLYCOPYRRONIUM\INDACATEROL
     Route: 042
  44. PANTOPRAZOLE [Suspect]
     Active Substance: PANTOPRAZOLE
     Route: 042
  45. IMURAN [Suspect]
     Active Substance: AZATHIOPRINE
     Indication: PRODUCT USED FOR UNKNOWN INDICATION
     Route: 065
  46. IMURAN [Suspect]
     Active Substance: AZATHIOPRINE
     Route: 065
  47. IMURAN [Suspect]
     Active Substance: AZATHIOPRINE
     Route: 065
  48. ULTIBRO BREEZHALER [Suspect]
     Active Substance: GLYCOPYRRONIUM\INDACATEROL
     Indication: PRODUCT USED FOR UNKNOWN INDICATION
     Route: 055
  49. WARFARIN [Suspect]
     Active Substance: WARFARIN
     Route: 065
  50. WARFARIN [Suspect]
     Active Substance: WARFARIN
     Route: 042
  51. WARFARIN [Suspect]
     Active Substance: WARFARIN
     Route: 042
  52. AZATHIOPRINE. [Suspect]
     Active Substance: AZATHIOPRINE
     Indication: PRODUCT USED FOR UNKNOWN INDICATION
     Route: 042
  53. METOPROLOL. [Suspect]
     Active Substance: METOPROLOL
     Indication: BLOOD PRESSURE ABNORMAL
     Dosage: 5 MILLIGRAM DAILY;
     Route: 048
  54. PREDNISONE ACETATE [Concomitant]
     Active Substance: PREDNISONE ACETATE
     Indication: PRODUCT USED FOR UNKNOWN INDICATION
     Route: 048
  55. AZATHIOPRINE. [Suspect]
     Active Substance: AZATHIOPRINE
     Indication: PRODUCT USED FOR UNKNOWN INDICATION
     Route: 048
  56. AZATHIOPRINE. [Suspect]
     Active Substance: AZATHIOPRINE
     Route: 065
  57. AZATHIOPRINE. [Suspect]
     Active Substance: AZATHIOPRINE
     Route: 065
  58. AZATHIOPRINE. [Suspect]
     Active Substance: AZATHIOPRINE
     Route: 065
  59. PANTOPRAZOLE [Suspect]
     Active Substance: PANTOPRAZOLE
     Route: 042
  60. FOLIC ACID. [Suspect]
     Active Substance: FOLIC ACID
     Route: 042
  61. FOLIC ACID. [Suspect]
     Active Substance: FOLIC ACID
     Route: 042
  62. FOLIC ACID. [Suspect]
     Active Substance: FOLIC ACID
     Route: 065
  63. IMURAN [Suspect]
     Active Substance: AZATHIOPRINE
     Route: 065
  64. IMURAN [Suspect]
     Active Substance: AZATHIOPRINE
     Route: 042
  65. INFLIXIMAB [Suspect]
     Active Substance: INFLIXIMAB
     Indication: CROHN^S DISEASE
     Route: 042
  66. ULTIBRO BREEZHALER [Suspect]
     Active Substance: GLYCOPYRRONIUM\INDACATEROL
     Route: 042
  67. VITAMIN E NOS [Suspect]
     Active Substance: .ALPHA.-TOCOPHEROL
     Route: 042
  68. WARFARIN [Suspect]
     Active Substance: WARFARIN
     Indication: ANTICOAGULANT THERAPY
     Dosage: 10 MILLIGRAM DAILY;
     Route: 048
  69. AZATHIOPRINE. [Suspect]
     Active Substance: AZATHIOPRINE
     Route: 042
  70. CALCIUM CARBONATE/VITAMIN D3 [Suspect]
     Active Substance: CALCIUM CARBONATE\CHOLECALCIFEROL
     Indication: OSTEOPOROSIS
     Dosage: 1000 MILLIGRAM DAILY;
     Route: 048
  71. PANTOPRAZOLE [Suspect]
     Active Substance: PANTOPRAZOLE
     Route: 042
  72. LASIX [Suspect]
     Active Substance: FUROSEMIDE
     Route: 065
  73. LASIX [Suspect]
     Active Substance: FUROSEMIDE
     Route: 042
  74. ULTIBRO BREEZHALER [Suspect]
     Active Substance: GLYCOPYRRONIUM\INDACATEROL
     Route: 042
  75. VITAMIN E NOS [Suspect]
     Active Substance: .ALPHA.-TOCOPHEROL
     Route: 065
  76. VITAMIN E NOS [Suspect]
     Active Substance: .ALPHA.-TOCOPHEROL
     Route: 065
  77. VITAMIN E NOS [Suspect]
     Active Substance: .ALPHA.-TOCOPHEROL
     Route: 042
  78. VITAMIN E NOS [Suspect]
     Active Substance: .ALPHA.-TOCOPHEROL
     Route: 042
  79. WARFARIN [Suspect]
     Active Substance: WARFARIN
     Route: 065

REACTIONS (2)
  - Drug intolerance [Unknown]
  - Leukopenia [Unknown]
